FAERS Safety Report 6790121-0 (Version None)
Quarter: 2010Q2

REPORT INFORMATION
  Report Type: 
  Country: None (occurrence: None)
  Receive Date: 20100624
  Receipt Date: 20100616
  Transmission Date: 20101027
  Serious: Yes (Hospitalization)
  Sender: FDA-Public Use
  Company Number: FR-NOVOPROD-308221

PATIENT
  Age: 67 Year
  Sex: Male
  Weight: 87 kg

DRUGS (10)
  1. NOVONORM [Suspect]
     Indication: TYPE 2 DIABETES MELLITUS
     Dosage: 3 MG, QD
     Route: 048
     Dates: start: 20100105, end: 20100123
  2. NISISCO [Concomitant]
     Indication: HYPERTENSION
     Dosage: UK/PO
     Route: 048
  3. LERCAN [Concomitant]
     Indication: HYPERTENSION
     Dosage: 20 MG, QD
     Route: 048
  4. AVLOCARDYL                         /00030001/ [Concomitant]
     Dosage: 80 MG, QD
     Route: 048
  5. TAHOR [Concomitant]
     Indication: DYSLIPIDAEMIA
     Dosage: 10 MG, QD
     Route: 048
  6. ZYLORIC                            /00003301/ [Concomitant]
     Dosage: 100 MG, QD
     Route: 048
  7. DIAMICRON [Concomitant]
     Dosage: 30 MG, QD
     Route: 048
  8. KARDEGIC                           /01740801/ [Concomitant]
     Dosage: 75 MG, QD
     Route: 048
  9. PREVISCAN                          /00261401/ [Concomitant]
     Dosage: UK/PO
     Route: 048
  10. FONZYLANE [Concomitant]
     Dosage: 300 MG, QD
     Route: 048

REACTIONS (1)
  - VASCULITIS [None]
